FAERS Safety Report 6997670-0 (Version None)
Quarter: 2010Q3

REPORT INFORMATION
  Report Type: 
  Country: None (occurrence: None)
  Receive Date: 20100918
  Receipt Date: 20091110
  Transmission Date: 20110219
  Serious: No
  Sender: FDA-Public Use
  Company Number: US-WYE-H12144809

PATIENT
  Sex: Female

DRUGS (1)
  1. PREMPRO [Suspect]
     Dosage: 0.3MG/1.5MG;FREQUENCY UNKNOWN
     Route: 048

REACTIONS (2)
  - HEADACHE [None]
  - WITHDRAWAL SYNDROME [None]
